FAERS Safety Report 11884854 (Version 1)
Quarter: 2016Q1

REPORT INFORMATION
  Report Type: Spontaneous
  Country: US (occurrence: US)
  Receive Date: 20160104
  Receipt Date: 20160104
  Transmission Date: 20160526
  Serious: No
  Sender: FDA-Public Use
  Company Number: US-AMGEN-USASP2015139653

PATIENT
  Age: 52 Year
  Sex: Female

DRUGS (3)
  1. ENBREL [Suspect]
     Active Substance: ETANERCEPT
     Indication: RHEUMATOID ARTHRITIS
     Dosage: 50 MG, QWK
     Route: 065
  2. PREDNISONE. [Concomitant]
     Active Substance: PREDNISONE
     Dosage: UNK
  3. ENBREL [Suspect]
     Active Substance: ETANERCEPT
     Dosage: 50 MG, Q2WK (EVERY OTHER WEEK)
     Route: 065

REACTIONS (12)
  - Sleep disorder [Unknown]
  - Condition aggravated [Unknown]
  - Pain [Unknown]
  - Nodule [Unknown]
  - Intentional product misuse [Unknown]
  - Arthralgia [Unknown]
  - Visual impairment [Unknown]
  - Stress [Unknown]
  - Pain in extremity [Unknown]
  - Tendonitis [Unknown]
  - Discomfort [Unknown]
  - Drug effect decreased [Unknown]

NARRATIVE: CASE EVENT DATE: 2015
